FAERS Safety Report 13136738 (Version 3)
Quarter: 2017Q2

REPORT INFORMATION
  Report Type: Spontaneous
  Country: US (occurrence: US)
  Receive Date: 20170123
  Receipt Date: 20170406
  Transmission Date: 20170830
  Serious: Yes (Death, Hospitalization, Other)
  Sender: FDA-Public Use
  Company Number: US-BRISTOL-MYERS SQUIBB COMPANY-BMS-2017-004746

PATIENT
  Sex: Female

DRUGS (1)
  1. BARACLUDE [Suspect]
     Active Substance: ENTECAVIR
     Indication: HEPATIC CIRRHOSIS
     Dosage: 0.5 MG, UNK
     Route: 065
     Dates: start: 20160809

REACTIONS (6)
  - Generalised oedema [Unknown]
  - Hepatic cirrhosis [Fatal]
  - Hyperlipidaemia [Unknown]
  - Hypoalbuminaemia [Unknown]
  - Ascites [Unknown]
  - Hepatic encephalopathy [Unknown]
